FAERS Safety Report 5782275-X (Version None)
Quarter: 2008Q2

REPORT INFORMATION
  Report Type: 
  Country: None (occurrence: None)
  Receive Date: 20080623
  Receipt Date: 20080612
  Transmission Date: 20081010
  Serious: Yes (Hospitalization, Other)
  Sender: FDA-Public Use
  Company Number: DE-PFIZER INC-2006097264

PATIENT
  Sex: Female
  Weight: 49 kg

DRUGS (2)
  1. LYRICA [Suspect]
     Indication: COMPLEX REGIONAL PAIN SYNDROME
     Dosage: DAILY DOSE:250MG
     Route: 048
     Dates: start: 20050901, end: 20051102
  2. LEVOTHYROXINE SODIUM [Concomitant]

REACTIONS (5)
  - DIZZINESS [None]
  - FALL [None]
  - FATIGUE [None]
  - FEMORAL NECK FRACTURE [None]
  - LOSS OF CONSCIOUSNESS [None]
